FAERS Safety Report 5565955-0 (Version None)
Quarter: 2007Q4

REPORT INFORMATION
  Report Type: 
  Country: None (occurrence: None)
  Receive Date: 20071219
  Receipt Date: 20071212
  Transmission Date: 20080405
  Serious: Yes (Other)
  Sender: FDA-Public Use
  Company Number: US-BAYER-200715801NA

PATIENT
  Age: 20 Year

DRUGS (2)
  1. MAGNEVIST [Suspect]
     Indication: NUCLEAR MAGNETIC RESONANCE IMAGING
     Dosage: UNIT DOSE: 10 ML
     Route: 042
     Dates: start: 20071128, end: 20071128
  2. INHALER NOS [Concomitant]
     Indication: ASTHMA

REACTIONS (4)
  - ANAPHYLACTIC REACTION [None]
  - LOCAL SWELLING [None]
  - THROAT TIGHTNESS [None]
  - WHEEZING [None]
